FAERS Safety Report 8477040-9 (Version None)
Quarter: 2012Q2

REPORT INFORMATION
  Report Type: 
  Country: None (occurrence: None)
  Receive Date: 20120629
  Receipt Date: 20120619
  Transmission Date: 20120825
  Serious: Yes (Other)
  Sender: FDA-Public Use
  Company Number: US-BAYER-2012-061411

PATIENT
  Age: 81 Year
  Sex: Female
  Weight: 54.422 kg

DRUGS (1)
  1. ASPIRIN [Suspect]
     Indication: HEADACHE
     Dosage: 2 U, PRN
     Route: 048
     Dates: start: 20120611

REACTIONS (2)
  - SPEECH DISORDER [None]
  - ABDOMINAL DISCOMFORT [None]
